FAERS Safety Report 5815785-7 (Version None)
Quarter: 2008Q3

REPORT INFORMATION
  Report Type: 
  Country: None (occurrence: None)
  Receive Date: 20080721
  Receipt Date: 20080718
  Transmission Date: 20090109
  Serious: Yes (Hospitalization)
  Sender: FDA-Public Use
  Company Number: JP-WYE-H04424808

PATIENT
  Sex: Female
  Weight: 42 kg

DRUGS (3)
  1. ENBREL [Suspect]
     Indication: RHEUMATOID ARTHRITIS
     Route: 058
     Dates: start: 20080421, end: 20080526
  2. ETODOLAC [Suspect]
     Indication: PAIN
     Route: 048
     Dates: start: 20060401, end: 20080526
  3. RHEUMATREX [Suspect]
     Indication: RHEUMATOID ARTHRITIS
     Route: 048
     Dates: start: 20060401, end: 20080526

REACTIONS (1)
  - PNEUMONIA [None]
